FAERS Safety Report 24611973 (Version 1)
Quarter: 2024Q4

REPORT INFORMATION
  Report Type: Spontaneous
  Country: JP (occurrence: JP)
  Receive Date: 20241113
  Receipt Date: 20241113
  Transmission Date: 20250114
  Serious: Yes (Death, Other)
  Sender: GLAXOSMITHKLINE
  Company Number: JP-GSK-JP2024JPN139933AA

PATIENT

DRUGS (6)
  1. EPZICOM [Suspect]
     Active Substance: ABACAVIR SULFATE\LAMIVUDINE
     Indication: HIV infection
     Dosage: UNK
     Dates: start: 2008
  2. EPIVIR [Suspect]
     Active Substance: LAMIVUDINE
     Indication: HIV infection
     Dosage: UNK
     Dates: start: 2008
  3. STAVUDINE [Suspect]
     Active Substance: STAVUDINE
     Indication: HIV infection
     Dosage: UNK
     Dates: start: 2008
  4. LOPINAVIR\RITONAVIR [Concomitant]
     Active Substance: LOPINAVIR\RITONAVIR
     Indication: HIV infection
     Dosage: UNK
     Dates: start: 2008
  5. RALTEGRAVIR [Concomitant]
     Active Substance: RALTEGRAVIR
     Indication: HIV infection
     Dosage: UNK
     Dates: start: 2012
  6. RALTEGRAVIR [Concomitant]
     Active Substance: RALTEGRAVIR
     Dosage: UNK, 1D
     Dates: start: 2018

REACTIONS (9)
  - Thrombophlebitis migrans [Fatal]
  - Pulmonary embolism [Fatal]
  - Neuropathy peripheral [Unknown]
  - Metastases to liver [Unknown]
  - Adenocarcinoma pancreas [Unknown]
  - Dyslipidaemia [Unknown]
  - Faeces discoloured [Unknown]
  - Polyp [Unknown]
  - Flank pain [Unknown]

NARRATIVE: CASE EVENT DATE: 20080101
